FAERS Safety Report 5574112-3 (Version None)
Quarter: 2007Q4

REPORT INFORMATION
  Report Type: 
  Country: None (occurrence: None)
  Receive Date: 20071221
  Receipt Date: 20071211
  Transmission Date: 20080405
  Serious: Yes (Disabling, Other)
  Sender: FDA-Public Use
  Company Number: CAP07000440

PATIENT
  Age: 84 Year
  Sex: Female

DRUGS (5)
  1. DIDROCAL           (ETIDRONATE DISODIUM/CALCIUM CARBONATE CYCLICAL) [Suspect]
     Indication: OSTEOPOROSIS
     Dosage: ORAL
     Route: 048
     Dates: start: 20060727, end: 20070101
  2. MODURET           (HYDROCHLOROTHIAZIDE, AMILORIDE HYDROCHLORIDE) [Concomitant]
  3. NAPROXEN [Concomitant]
  4. CALCIUM                           (CALCIUM) [Concomitant]
  5. GLUCOSAMINE                       (GLUCOSAMINE) [Concomitant]

REACTIONS (5)
  - ASTHENIA [None]
  - BACK PAIN [None]
  - IMMOBILE [None]
  - PAIN IN EXTREMITY [None]
  - WALKING AID USER [None]
